FAERS Safety Report 9847548 (Version 1)
Quarter: 2014Q1

REPORT INFORMATION
  Report Type: Report from Study
  Country: US (occurrence: US)
  Receive Date: 20140128
  Receipt Date: 20140128
  Transmission Date: 20141002
  Serious: Yes (Life-Threatening)
  Sender: FDA-Public Use
  Company Number: US-ROCHE-1334435

PATIENT
  Age: 63 Year
  Sex: Female
  Weight: 78.09 kg

DRUGS (1)
  1. HERCEPTIN [Suspect]
     Indication: BREAST CANCER
     Route: 050
     Dates: start: 20130906

REACTIONS (3)
  - Drug hypersensitivity [Recovered/Resolved]
  - Fatigue [Recovering/Resolving]
  - Iron deficiency anaemia [Not Recovered/Not Resolved]
